FAERS Safety Report 9216477 (Version 2)
Quarter: 2013Q2

REPORT INFORMATION
  Report Type: Spontaneous
  Country: JP (occurrence: JP)
  Receive Date: 20130408
  Receipt Date: 20130503
  Transmission Date: 20140414
  Serious: Yes (Hospitalization)
  Sender: FDA-Public Use
  Company Number: JP-BRISTOL-MYERS SQUIBB COMPANY-18730689

PATIENT
  Age: 36 Year
  Sex: Female
  Weight: 55 kg

DRUGS (7)
  1. ORENCIA FOR INJ 250 MG/VIAL [Suspect]
     Indication: RHEUMATOID VASCULITIS
     Route: 041
     Dates: start: 20130124, end: 20130207
  2. METHOTREXATE [Suspect]
     Indication: RHEUMATOID VASCULITIS
     Route: 048
  3. PREDONINE [Concomitant]
     Indication: RHEUMATOID VASCULITIS
     Route: 048
  4. FOLIAMIN [Concomitant]
     Indication: RHEUMATOID VASCULITIS
     Route: 048
  5. TAKEPRON [Concomitant]
     Indication: RHEUMATOID VASCULITIS
     Route: 048
  6. LOXOPROFEN [Concomitant]
     Indication: RHEUMATOID VASCULITIS
     Route: 048
  7. MUCOSTA [Concomitant]
     Indication: RHEUMATOID VASCULITIS
     Route: 048

REACTIONS (1)
  - Erythema nodosum [Recovering/Resolving]
